FAERS Safety Report 8309908-8 (Version None)
Quarter: 2012Q2

REPORT INFORMATION
  Report Type: 
  Country: None (occurrence: None)
  Receive Date: 20120425
  Receipt Date: 20120419
  Transmission Date: 20120825
  Serious: Yes (Hospitalization, Other)
  Sender: FDA-Public Use
  Company Number: FR-PFIZER INC-2011031912

PATIENT
  Age: 51 Year
  Sex: Female
  Weight: 67 kg

DRUGS (13)
  1. SOMATROPIN [Suspect]
     Indication: HYPOPITUITARISM
     Dosage: 0.2 MG, 1X/DAY
     Dates: start: 20060314, end: 20060913
  2. LEVOTHYROXINE SODIUM [Concomitant]
     Indication: PRIMARY HYPOTHYROIDISM
  3. IXEL [Concomitant]
     Indication: DEPRESSION
     Dosage: UNK
     Route: 048
     Dates: start: 20060120, end: 20061012
  4. IXEL [Concomitant]
     Indication: ANXIETY
  5. MINIRIN ^AVENTIS PHARMA^ [Concomitant]
     Indication: BLOOD ANTIDIURETIC HORMONE DECREASED
     Dosage: UNK
     Route: 048
     Dates: start: 20040701
  6. PRAZEPAM [Concomitant]
     Indication: ANXIETY
     Dosage: 1 DF, 1X/DAY
     Route: 048
     Dates: start: 20060314
  7. SOMATROPIN [Suspect]
     Indication: GROWTH HORMONE DEFICIENCY
  8. HYDROCORTISONE [Concomitant]
     Indication: BLOOD CORTICOTROPHIN DECREASED
     Dosage: 20 MG, 1X/DAY
     Route: 048
     Dates: start: 20040914
  9. PRAZEPAM [Concomitant]
     Indication: DEPRESSION
  10. CRESTOR [Concomitant]
     Indication: BLOOD CORTICOTROPHIN DECREASED
     Dosage: UNK
     Route: 048
     Dates: start: 20060913
  11. AMLODIPINE BESYLATE [Concomitant]
     Indication: DYSLIPIDAEMIA
     Dosage: 1 DF, 1X/DAY
     Route: 048
     Dates: start: 20060913
  12. LEVOTHYROXINE SODIUM [Concomitant]
     Indication: BLOOD THYROID STIMULATING HORMONE DECREASED
     Dosage: 100 UG, 1X/DAY
     Route: 048
     Dates: start: 20041213
  13. IMOVANE [Concomitant]
     Indication: INSOMNIA
     Dosage: UNK
     Route: 048
     Dates: start: 20060314, end: 20060906

REACTIONS (2)
  - CRANIOPHARYNGIOMA [None]
  - CONDITION AGGRAVATED [None]
